FAERS Safety Report 4973433-2 (Version None)
Quarter: 2006Q2

REPORT INFORMATION
  Report Type: 
  Country: None (occurrence: None)
  Receive Date: 20060410
  Receipt Date: 20060316
  Transmission Date: 20061013
  Serious: Yes (Death)
  Sender: FDA-Public Use
  Company Number: 2006VX000374

PATIENT
  Age: 53 Year
  Sex: 0

DRUGS (3)
  1. CHLORDIAZEPOXIDE HCL [Suspect]
     Dosage: PO
     Route: 048
  2. ANEXSIA [Suspect]
  3. DESOXYN [Suspect]

REACTIONS (2)
  - COMPLETED SUICIDE [None]
  - INTENTIONAL DRUG MISUSE [None]
